FAERS Safety Report 21034647 (Version 1)
Quarter: 2022Q3

REPORT INFORMATION
  Report Type: Report from Study
  Country: US (occurrence: US)
  Receive Date: 20220701
  Receipt Date: 20220701
  Transmission Date: 20221027
  Serious: No
  Sender: FDA-Public Use
  Company Number: US-BIOVITRUM-2022US06889

PATIENT
  Age: 2 Year
  Sex: Female

DRUGS (2)
  1. KINERET [Suspect]
     Active Substance: ANAKINRA
     Indication: Still^s disease
     Dates: start: 202205
  2. KINERET [Suspect]
     Active Substance: ANAKINRA
     Dates: start: 20220614

REACTIONS (3)
  - Adverse drug reaction [Unknown]
  - Overdose [Unknown]
  - Off label use [Recovered/Resolved]

NARRATIVE: CASE EVENT DATE: 20220501
